FAERS Safety Report 11640305 (Version 2)
Quarter: 2015Q4

REPORT INFORMATION
  Report Type: Spontaneous
  Country: US (occurrence: US)
  Receive Date: 20151019
  Receipt Date: 20151207
  Transmission Date: 20160304
  Serious: Yes (Other)
  Sender: FDA-Public Use
  Company Number: US-GLAXOSMITHKLINE-US2015145463

PATIENT
  Age: 9 Year
  Sex: Female

DRUGS (2)
  1. VENTOLIN HFA [Suspect]
     Active Substance: ALBUTEROL SULFATE
     Indication: ASTHMA
     Dosage: 1 PUFF(S), PRN
     Route: 055
  2. STRATTERA [Concomitant]
     Active Substance: ATOMOXETINE HYDROCHLORIDE

REACTIONS (9)
  - Lung infection [Unknown]
  - Dyspnoea [Recovered/Resolved]
  - Malaise [Unknown]
  - Chest discomfort [Recovered/Resolved]
  - Wheezing [Recovered/Resolved]
  - Asthma [Unknown]
  - Product quality issue [Unknown]
  - Bronchitis [Unknown]
  - Inappropriate schedule of drug administration [Unknown]

NARRATIVE: CASE EVENT DATE: 201509
